FAERS Safety Report 6328549-5 (Version None)
Quarter: 2009Q3

REPORT INFORMATION
  Report Type: 
  Country: None (occurrence: None)
  Receive Date: 20090825
  Receipt Date: 20090825
  Transmission Date: 20100115
  Serious: Yes (Life-Threatening, Hospitalization)
  Sender: FDA-Public Use
  Company Number: None

PATIENT
  Age: 50 Year
  Sex: Female
  Weight: 71 kg

DRUGS (10)
  1. CARIMUNE NF [Suspect]
     Indication: MULTIPLE SCLEROSIS
     Dosage: 168 GRAMS DAILY IV
     Route: 042
     Dates: start: 20090321, end: 20090325
  2. DUONEB [Concomitant]
  3. INSULIN [Concomitant]
  4. PREVACID [Concomitant]
  5. MUCOMYST [Concomitant]
  6. LOVENOX [Concomitant]
  7. ATIVAN [Concomitant]
  8. FENTANYL [Concomitant]
  9. EPOGEN [Concomitant]
  10. ZOFRAN [Concomitant]

REACTIONS (4)
  - BLOOD SODIUM DECREASED [None]
  - DISSEMINATED INTRAVASCULAR COAGULATION [None]
  - HAEMODIALYSIS [None]
  - RENAL FAILURE ACUTE [None]
